FAERS Safety Report 9995301 (Version 4)
Quarter: 2014Q2

REPORT INFORMATION
  Report Type: Report from Study
  Country: JP (occurrence: JP)
  Receive Date: 20140311
  Receipt Date: 20140409
  Transmission Date: 20141212
  Serious: Yes (Life-Threatening)
  Sender: FDA-Public Use
  Company Number: JP-ASTELLAS-2014EU002056

PATIENT
  Age: 67 Year
  Sex: Male
  Weight: 70.3 kg

DRUGS (17)
  1. PLACEBO [Suspect]
     Indication: PROSTATE CANCER METASTATIC
     Dosage: UNK
     Route: 065
     Dates: end: 20120305
  2. ENZALUTAMIDE [Suspect]
     Indication: PROSTATE CANCER METASTATIC
     Dosage: 160 MG, UID/QD
     Route: 048
     Dates: start: 20140219, end: 20140225
  3. ZOLPIDEM TARTRATE [Suspect]
     Indication: INSOMNIA
     Dosage: 5 MG, PRN
     Route: 048
     Dates: start: 20111228
  4. BROTIZOLAM [Suspect]
     Dosage: UNK
     Route: 065
  5. FLUNITRAZEPAM [Concomitant]
     Indication: INSOMNIA
     Dosage: 1 MG, UID/QD
     Route: 048
     Dates: start: 20120905
  6. MECOBALAMIN [Concomitant]
     Indication: TINNITUS
     Dosage: 500 UG, TID
     Route: 048
     Dates: start: 20130625
  7. ADENOSINE TRIPHOSPHATE, DISODIUM SALT [Concomitant]
     Indication: TINNITUS
     Dosage: 100 MG, TID
     Route: 048
     Dates: start: 20130625
  8. HEPARINOID [Concomitant]
     Indication: DRY SKIN
     Dosage: UNK
     Route: 061
     Dates: start: 20131114
  9. ETIZOLAM [Concomitant]
     Indication: ANXIETY
     Dosage: 0.5 MG, PRN
     Route: 048
     Dates: start: 20120323
  10. ROSUVASTATIN CALCIUM [Concomitant]
     Indication: HYPERLIPIDAEMIA
     Dosage: 2.5 MG, UID/QD
     Route: 048
     Dates: start: 2009
  11. ZOLEDRONIC ACID MONOHYDRATE [Concomitant]
     Indication: METASTASES TO BONE
     Dosage: 4 MG, 1 IN 1 M
     Route: 042
     Dates: start: 20101013
  12. SILODOSIN [Concomitant]
     Indication: BENIGN PROSTATIC HYPERPLASIA
     Dosage: 4 MG, BID
     Route: 048
     Dates: start: 20130716
  13. WARFARIN POTASSIUM [Concomitant]
     Indication: DEEP VEIN THROMBOSIS
     Dosage: 2.5 MG, UID/QD
     Route: 048
     Dates: start: 20130701
  14. VALSARTAN [Concomitant]
     Indication: HYPERTENSION
     Dosage: 80 MG, UID/QD
     Route: 048
     Dates: start: 1997
  15. LEUPRORELIN ACETATE [Concomitant]
     Indication: PROSTATE CANCER
     Dosage: 11.25 MG, 1 IN 3 M
     Route: 058
     Dates: start: 20100915
  16. RABEPRAZOLE SODIUM [Concomitant]
     Indication: PROPHYLAXIS AGAINST GASTROINTESTINAL ULCER
     Dosage: 10 MG, UID/QD
     Route: 048
     Dates: start: 20131107
  17. MAGNESIUM OXIDE [Concomitant]
     Indication: CONSTIPATION
     Dosage: 250 MG, TID
     Route: 048
     Dates: start: 20130719

REACTIONS (1)
  - Suicide attempt [Recovered/Resolved]
